FAERS Safety Report 10136961 (Version 1)
Quarter: 2014Q2

REPORT INFORMATION
  Report Type: Spontaneous
  Country: US (occurrence: None)
  Receive Date: 20140425
  Receipt Date: 20140425
  Transmission Date: 20141212
  Serious: Yes (Hospitalization)
  Sender: FDA-Public Use
  Company Number: UTC-047482

PATIENT
  Age: 36 Year
  Sex: Female
  Weight: 48 kg

DRUGS (2)
  1. REMODULIN (1 MILLIGRAM/MILLILITERS, INJECTION FOR INFUSION) (TREPROSTINIL SODIUM) [Suspect]
     Indication: COR PULMONALE CHRONIC
     Dosage: 0.038 UG/KG, 1 IN 1 MIN
     Route: 042
     Dates: start: 20131011
  2. ADCIRCA (TADALAFIL) (UNKNOWN) [Concomitant]

REACTIONS (1)
  - Lung transplant [None]
